FAERS Safety Report 7744265-7 (Version None)
Quarter: 2011Q3

REPORT INFORMATION
  Report Type: 
  Country: None (occurrence: None)
  Receive Date: 20110912
  Receipt Date: 20110906
  Transmission Date: 20111222
  Serious: Yes (Disabling, Other)
  Sender: FDA-Public Use
  Company Number: US-PURDUE-USA-2011-0074427

PATIENT
  Age: 18 Year
  Sex: Male

DRUGS (1)
  1. OXYCODONE HYDROCHLORIDE [Suspect]
     Indication: OROPHARYNGEAL PAIN
     Dosage: 5 ML, SINGLE

REACTIONS (5)
  - INCORRECT DOSE ADMINISTERED [None]
  - ORGAN FAILURE [None]
  - PARALYSIS [None]
  - ACCIDENTAL OVERDOSE [None]
  - COMA [None]
